FAERS Safety Report 21074453 (Version 3)
Quarter: 2022Q3

REPORT INFORMATION
  Report Type: Other
  Country: CA (occurrence: None)
  Receive Date: 20220713
  Receipt Date: 20220821
  Transmission Date: 20221026
  Serious: Yes (Hospitalization, Other)
  Sender: FDA-Public Use
  Company Number: CA-ROCHE-3132050

PATIENT
  Age: 55 Year
  Sex: Female

DRUGS (3)
  1. OCREVUS [Suspect]
     Active Substance: OCRELIZUMAB
     Indication: Relapsing-remitting multiple sclerosis
     Dosage: DAY 0 AND 14, THEN 600 MG EVERY 6 MONTH
     Route: 042
     Dates: start: 20191203
  2. FUCIDIN [Concomitant]
     Active Substance: FUSIDATE SODIUM
  3. CEPHALEXIN [Concomitant]
     Active Substance: CEPHALEXIN
     Dates: start: 20220630

REACTIONS (2)
  - Appendicitis [Recovered/Resolved]
  - Postoperative wound infection [Recovering/Resolving]

NARRATIVE: CASE EVENT DATE: 20220608
